FAERS Safety Report 10904641 (Version 1)
Quarter: 2015Q1

REPORT INFORMATION
  Report Type: Spontaneous
  Country: IT (occurrence: IT)
  Receive Date: 20150311
  Receipt Date: 20150311
  Transmission Date: 20150721
  Serious: Yes (Hospitalization)
  Sender: FDA-Public Use
  Company Number: IT-MYLANLABS-2015M1007566

PATIENT

DRUGS (2)
  1. WARFARIN [Suspect]
     Active Substance: WARFARIN
     Route: 048
  2. TICLOPIDINE [Suspect]
     Active Substance: TICLOPIDINE
     Route: 048

REACTIONS (2)
  - Purpura [Recovered/Resolved]
  - Drug administration error [Recovered/Resolved]
